FAERS Safety Report 14703751 (Version 1)
Quarter: 2018Q2

REPORT INFORMATION
  Report Type: Spontaneous
  Country: US (occurrence: US)
  Receive Date: 20180402
  Receipt Date: 20180402
  Transmission Date: 20180711
  Serious: No
  Sender: FDA-Public Use
  Company Number: US-PFIZER INC-2018128780

PATIENT
  Age: 42 Year
  Sex: Male

DRUGS (1)
  1. EUCRISA [Suspect]
     Active Substance: CRISABOROLE
     Dosage: UNK, TWICE DAILY (APPLIED TO AFFECTED AREAS)
     Route: 061
     Dates: start: 201801

REACTIONS (3)
  - Dermatitis [Unknown]
  - Drug ineffective [Unknown]
  - Condition aggravated [Unknown]
